FAERS Safety Report 10234860 (Version 2)
Quarter: 2014Q2

REPORT INFORMATION
  Report Type: Spontaneous
  Country: ES (occurrence: ES)
  Receive Date: 20140613
  Receipt Date: 20140616
  Transmission Date: 20141212
  Serious: Yes (Death, Hospitalization, Other)
  Sender: FDA-Public Use
  Company Number: ES-009507513-1406ESP001996

PATIENT
  Sex: Male

DRUGS (1)
  1. ISENTRESS [Suspect]
     Indication: HIV INFECTION
     Dosage: STRENGTH: 400MG, UNKNOWN
     Route: 048

REACTIONS (5)
  - HIV infection [Fatal]
  - Condition aggravated [Fatal]
  - Sarcoma [Unknown]
  - Endotracheal intubation [Unknown]
  - Adverse event [Unknown]
